FAERS Safety Report 17643973 (Version 2)
Quarter: 2020Q2

REPORT INFORMATION
  Report Type: Spontaneous
  Country: US (occurrence: US)
  Receive Date: 20200408
  Receipt Date: 20200527
  Transmission Date: 20200713
  Serious: No
  Sender: FDA-Public Use
  Company Number: US-MYLANLABS-2020M1030817

PATIENT
  Sex: Male

DRUGS (2)
  1. MYLAN-TADALAFIL [Suspect]
     Active Substance: TADALAFIL
     Indication: CHRONIC KIDNEY DISEASE
     Dosage: UNK
     Route: 048
  2. LISINOPRIL. [Concomitant]
     Active Substance: LISINOPRIL
     Dosage: UNK

REACTIONS (1)
  - Off label use [Not Recovered/Not Resolved]
